FAERS Safety Report 9094106 (Version 1)
Quarter: 2013Q1

REPORT INFORMATION
  Report Type: Spontaneous
  Country: US (occurrence: US)
  Receive Date: 20130218
  Receipt Date: 20130218
  Transmission Date: 20140127
  Serious: No
  Sender: FDA-Public Use
  Company Number: US-ASTRAZENECA-2013SE09081

PATIENT
  Age: 17 Year
  Sex: Female

DRUGS (1)
  1. SEROQUEL [Suspect]
     Dosage: 12.5 MG, 5 DOSES, UNKNOWN FREQUENCY
     Route: 048

REACTIONS (2)
  - Hallucination [Unknown]
  - Intentional drug misuse [Unknown]
